FAERS Safety Report 5232713-6 (Version None)
Quarter: 2007Q1

REPORT INFORMATION
  Report Type: 
  Country: None (occurrence: None)
  Receive Date: 20070206
  Receipt Date: 20070206
  Transmission Date: 20070707
  Serious: No
  Sender: FDA-Public Use
  Company Number: None

PATIENT
  Sex: Female
  Weight: 54.4316 kg

DRUGS (1)
  1. REGLAN [Suspect]
     Indication: VOMITING
     Dosage: 2 MG/HR 2 MG Q2H PRN SQ
     Route: 058
     Dates: start: 20070108, end: 20070204

REACTIONS (2)
  - ADVERSE DRUG REACTION [None]
  - RASH [None]
